FAERS Safety Report 12733898 (Version 2)
Quarter: 2016Q4

REPORT INFORMATION
  Report Type: Spontaneous
  Country: FR (occurrence: FR)
  Receive Date: 20160912
  Receipt Date: 20161222
  Transmission Date: 20170207
  Serious: Yes (Death, Hospitalization)
  Sender: FDA-Public Use
  Company Number: FR-ROCHE-1827139

PATIENT
  Age: 71 Year
  Sex: Female

DRUGS (10)
  1. HYDREA [Suspect]
     Active Substance: HYDROXYUREA
     Indication: ESSENTIAL THROMBOCYTHAEMIA
     Route: 048
     Dates: start: 201512, end: 20160816
  2. ESBERIVEN FORT [Concomitant]
     Active Substance: MELILOTUS OFFICINALIS TOP\RUTIN
  3. COAPROVEL [Concomitant]
     Active Substance: HYDROCHLOROTHIAZIDE\IRBESARTAN
     Dosage: 300/25 MG
     Route: 065
  4. ESOMEPRAZOLE [Concomitant]
     Active Substance: ESOMEPRAZOLE
  5. TEMERIT [Concomitant]
     Active Substance: NEBIVOLOL
     Route: 065
  6. TILCOTIL [Concomitant]
     Active Substance: TENOXICAM
     Route: 065
  7. XELODA [Suspect]
     Active Substance: CAPECITABINE
     Indication: COLORECTAL ADENOCARCINOMA
     Route: 048
     Dates: start: 20160805, end: 20160816
  8. TARDYFERON (FRANCE) [Concomitant]
  9. KARDEGIC [Concomitant]
     Active Substance: ASPIRIN LYSINE
     Route: 065
  10. HYDREA [Concomitant]
     Active Substance: HYDROXYUREA
     Dosage: 1 CAPSULE/DAY
     Route: 065
     Dates: start: 201512

REACTIONS (4)
  - Agranulocytosis [Fatal]
  - Thrombocytopenia [Unknown]
  - Anaemia [Unknown]
  - Bone marrow failure [Fatal]
